FAERS Safety Report 16210261 (Version 1)
Quarter: 2019Q2

REPORT INFORMATION
  Report Type: Spontaneous
  Country: US (occurrence: US)
  Receive Date: 20190313
  Receipt Date: 20190313
  Transmission Date: 20190711
  Serious: No
  Sender: FDA-Public Use
  Company Number: None

PATIENT
  Age: 80 Year
  Sex: Male

DRUGS (1)
  1. ASPERCREME WITH LIDOCAINE [Suspect]
     Active Substance: LIDOCAINE
     Indication: ARTHRALGIA
     Route: 061
     Dates: start: 20190303

REACTIONS (2)
  - Rash [None]
  - Pruritus [None]

NARRATIVE: CASE EVENT DATE: 20190303
